FAERS Safety Report 8321919-5 (Version None)
Quarter: 2012Q2

REPORT INFORMATION
  Report Type: 
  Country: None (occurrence: None)
  Receive Date: 20120430
  Receipt Date: 20120423
  Transmission Date: 20120825
  Serious: Yes (Hospitalization)
  Sender: FDA-Public Use
  Company Number: US-ASTRAZENECA-2012SE26602

PATIENT
  Age: 48 Year
  Sex: Male

DRUGS (1)
  1. CRESTOR [Suspect]
     Dosage: TAKING 3 TBLETS MORE THAN PRESCRIBED
     Route: 048

REACTIONS (2)
  - INTENTIONAL DRUG MISUSE [None]
  - ARTERIAL OCCLUSIVE DISEASE [None]
